FAERS Safety Report 9471407 (Version 1)
Quarter: 2013Q3

REPORT INFORMATION
  Report Type: Spontaneous
  Country: US (occurrence: None)
  Receive Date: 20130819
  Receipt Date: 20130819
  Transmission Date: 20140515
  Serious: Yes (Other)
  Sender: FDA-Public Use
  Company Number: AUR-APL-2013-05181

PATIENT
  Age: 76 Year
  Sex: Male

DRUGS (6)
  1. LISINOPRIL (LISINOPRIL) [Suspect]
     Indication: HYPERTENSION
     Dosage: 10 MG (10 MG, 1 IN 1 D), ORAL
     Route: 048
  2. ELIQUIS [Suspect]
     Indication: ATRIAL FIBRILLATION
     Dosage: 10 MG (5 MG, 3 IN 1 D), ORAL
     Route: 048
     Dates: start: 20130416
  3. ASPIRIN (ACETYLSALICYLIC ACID) [Concomitant]
  4. LORAZEPAM (LORAZEPAM) [Concomitant]
  5. DIOVAN (VALSARTAN) [Concomitant]
  6. GLIPIZIDE (GLIPIZIDE) [Concomitant]

REACTIONS (1)
  - Angioedema [None]
